FAERS Safety Report 21813101 (Version 1)
Quarter: 2023Q1

REPORT INFORMATION
  Report Type: Spontaneous
  Country: US (occurrence: US)
  Receive Date: 20230103
  Receipt Date: 20230103
  Transmission Date: 20230418
  Serious: No
  Sender: FDA-Public Use
  Company Number: US-SUNOVION-2023SUN000001AA

PATIENT

DRUGS (2)
  1. LUNESTA [Suspect]
     Active Substance: ESZOPICLONE
     Dosage: 3 MG
     Route: 048
  2. LUNESTA [Suspect]
     Active Substance: ESZOPICLONE
     Dosage: 2 MG
     Route: 048

REACTIONS (5)
  - Drug ineffective [Unknown]
  - Insomnia [Unknown]
  - Tremor [Unknown]
  - Wrong technique in product usage process [Unknown]
  - Off label use [Unknown]
